FAERS Safety Report 15808334 (Version 2)
Quarter: 2019Q1

REPORT INFORMATION
  Report Type: Spontaneous
  Country: US (occurrence: US)
  Receive Date: 20190110
  Receipt Date: 20190211
  Transmission Date: 20190417
  Serious: Yes (Other)
  Sender: FDA-Public Use
  Company Number: US-BAUSCH-BL-2019-000444

PATIENT
  Sex: Female

DRUGS (2)
  1. VYZULTA [Suspect]
     Active Substance: LATANOPROSTENE BUNOD
     Route: 065
     Dates: start: 20190103
  2. VYZULTA [Suspect]
     Active Substance: LATANOPROSTENE BUNOD
     Indication: PRODUCT USED FOR UNKNOWN INDICATION
     Dosage: IN THE EVENING, STARTED ABOUT 3 WEEKS AGO
     Route: 065
     Dates: start: 201812, end: 20190102

REACTIONS (5)
  - Drug effect incomplete [Unknown]
  - Intraocular pressure increased [Not Recovered/Not Resolved]
  - Product dose omission [Recovered/Resolved]
  - Dizziness [Recovered/Resolved]
  - Condition aggravated [Not Recovered/Not Resolved]

NARRATIVE: CASE EVENT DATE: 20190102
